FAERS Safety Report 12861024 (Version 2)
Quarter: 2016Q4

REPORT INFORMATION
  Report Type: Report from Study
  Country: US (occurrence: US)
  Receive Date: 20161019
  Receipt Date: 20161027
  Transmission Date: 20170207
  Serious: Yes (Death, Hospitalization, Other)
  Sender: FDA-Public Use
  Company Number: US-BAYER-2014-005913

PATIENT
  Age: 76 Year
  Sex: Female
  Weight: 117.91 kg

DRUGS (12)
  1. ADEMPAS [Suspect]
     Active Substance: RIOCIGUAT
     Indication: COR PULMONALE CHRONIC
     Dosage: 2 MG, TID
     Route: 048
     Dates: start: 20131218
  2. ADEMPAS [Suspect]
     Active Substance: RIOCIGUAT
     Indication: COR PULMONALE CHRONIC
     Dosage: 2.5 MG, TID
     Route: 048
  3. ADEMPAS [Suspect]
     Active Substance: RIOCIGUAT
     Indication: COR PULMONALE CHRONIC
     Dosage: 2 MG, TID
     Route: 048
  4. ADEMPAS [Suspect]
     Active Substance: RIOCIGUAT
     Indication: COR PULMONALE CHRONIC
     Dosage: 2.5 MG, TID
     Route: 048
  5. OPSUMIT [Suspect]
     Active Substance: MACITENTAN
  6. COUMADIN [Concomitant]
     Active Substance: WARFARIN SODIUM
     Dosage: UNK
  7. NORVASC [Concomitant]
     Active Substance: AMLODIPINE BESYLATE
  8. ADEMPAS [Suspect]
     Active Substance: RIOCIGUAT
     Indication: PULMONARY HYPERTENSION
     Dosage: 1 MG, TID
     Route: 048
  9. ADEMPAS [Suspect]
     Active Substance: RIOCIGUAT
     Indication: COR PULMONALE CHRONIC
     Dosage: 2.5 MG, TID
     Route: 048
  10. ADEMPAS [Suspect]
     Active Substance: RIOCIGUAT
     Indication: COR PULMONALE CHRONIC
     Dosage: 0.5 MG, TID
     Route: 048
     Dates: start: 20131217
  11. ADEMPAS [Suspect]
     Active Substance: RIOCIGUAT
     Indication: COR PULMONALE CHRONIC
     Dosage: 2.5 MG, TID
     Route: 048
  12. XARELTO [Suspect]
     Active Substance: RIVAROXABAN

REACTIONS (16)
  - Peripheral swelling [None]
  - Nausea [Recovering/Resolving]
  - Fatigue [Unknown]
  - Oedema peripheral [Unknown]
  - Bone disorder [None]
  - Abdominal pain [Recovering/Resolving]
  - Hypersomnia [None]
  - Thyroid operation [None]
  - Swelling [None]
  - Constipation [None]
  - Eye disorder [Unknown]
  - Pulmonary hypertension [Unknown]
  - Pulmonary arterial hypertension [Fatal]
  - Critical illness [None]
  - Herpes zoster [Recovering/Resolving]
  - Epistaxis [Unknown]

NARRATIVE: CASE EVENT DATE: 20131229
